FAERS Safety Report 23686855 (Version 1)
Quarter: 2024Q1

REPORT INFORMATION
  Report Type: Spontaneous
  Country: SG (occurrence: SG)
  Receive Date: 20240329
  Receipt Date: 20240329
  Transmission Date: 20240410
  Serious: Yes (Other)
  Sender: FDA-Public Use
  Company Number: SG-STERISCIENCE B.V.-2024-ST-000329

PATIENT

DRUGS (1)
  1. GANCICLOVIR SODIUM [Suspect]
     Active Substance: GANCICLOVIR SODIUM
     Indication: Product used for unknown indication
     Dosage: INADVERTENT OVERDOSE

REACTIONS (4)
  - Accidental overdose [Unknown]
  - Retinal toxicity [Unknown]
  - Cytomegalovirus chorioretinitis [Unknown]
  - Off label use [Unknown]
